FAERS Safety Report 4775945-3 (Version None)
Quarter: 2005Q3

REPORT INFORMATION
  Report Type: 
  Country: None (occurrence: None)
  Receive Date: 20050922
  Receipt Date: 20050829
  Transmission Date: 20060218
  Serious: Yes (Hospitalization)
  Sender: FDA-Public Use
  Company Number: JP-JPN-A20052040

PATIENT
  Age: 74 Year
  Sex: Female
  Weight: 38 kg

DRUGS (7)
  1. VALTREX [Suspect]
     Indication: HERPES ZOSTER
     Dosage: 1000MG THREE TIMES PER DAY
     Route: 048
     Dates: start: 20050622, end: 20050624
  2. LOXONIN [Suspect]
     Indication: HERPES ZOSTER
     Dosage: 60MG THREE TIMES PER DAY
     Route: 048
     Dates: start: 20050622, end: 20050623
  3. FLOMAX [Suspect]
     Indication: OTITIS MEDIA CHRONIC
     Dosage: 100MG THREE TIMES PER DAY
     Route: 048
     Dates: start: 20050621, end: 20050624
  4. MOBIC [Suspect]
     Dosage: 5MG TWICE PER DAY
     Route: 048
     Dates: start: 20050617, end: 20050624
  5. ULGUT [Concomitant]
     Indication: GASTRITIS
     Dosage: 400MG PER DAY
     Route: 048
     Dates: start: 20050617, end: 20050624
  6. GASTER D [Concomitant]
     Indication: GASTRIC ULCER
     Dosage: 400MG PER DAY
     Route: 048
     Dates: start: 19910101, end: 20050624
  7. LISINOPRIL [Concomitant]
     Route: 048
     Dates: end: 20050624

REACTIONS (7)
  - BLOOD CREATININE INCREASED [None]
  - BLOOD UREA INCREASED [None]
  - BLOOD URINE PRESENT [None]
  - DYSPEPSIA [None]
  - NAUSEA [None]
  - RENAL FAILURE ACUTE [None]
  - VOMITING [None]
